FAERS Safety Report 13263908 (Version 2)
Quarter: 2017Q1

REPORT INFORMATION
  Report Type: Spontaneous
  Country: US (occurrence: US)
  Receive Date: 20170223
  Receipt Date: 20170301
  Transmission Date: 20170428
  Serious: Yes (Other)
  Sender: FDA-Public Use
  Company Number: US-PFIZER INC-2017078212

PATIENT
  Sex: Female

DRUGS (1)
  1. VIAGRA [Suspect]
     Active Substance: SILDENAFIL CITRATE
     Dosage: UNK

REACTIONS (6)
  - Drug ineffective [Unknown]
  - Erection increased [Unknown]
  - Overdose [Unknown]
  - Penis disorder [Unknown]
  - Urinary retention [Unknown]
  - Product use issue [Unknown]

NARRATIVE: CASE EVENT DATE: 20170220
